FAERS Safety Report 14703515 (Version 6)
Quarter: 2019Q1

REPORT INFORMATION
  Report Type: Report from Study
  Country: FR (occurrence: FR)
  Receive Date: 20180402
  Receipt Date: 20190210
  Transmission Date: 20190417
  Serious: Yes (Life-Threatening, Hospitalization, Other)
  Sender: FDA-Public Use
  Company Number: PHHY2018FR052268

PATIENT
  Age: 54 Year
  Sex: Male
  Weight: 80 kg

DRUGS (1)
  1. VOTRIENT [Suspect]
     Active Substance: PAZOPANIB HYDROCHLORIDE
     Indication: RENAL CANCER METASTATIC
     Dosage: 800 MG, QD
     Route: 048
     Dates: start: 20180215, end: 20180315

REACTIONS (9)
  - Blood alkaline phosphatase increased [Recovering/Resolving]
  - Fatigue [Unknown]
  - Hypercalcaemia [Not Recovered/Not Resolved]
  - Wound secretion [Recovered/Resolved]
  - Gamma-glutamyltransferase increased [Recovering/Resolving]
  - Infection [Recovered/Resolved with Sequelae]
  - Pain [Recovering/Resolving]
  - Alanine aminotransferase increased [Recovering/Resolving]
  - Aspartate aminotransferase increased [Unknown]

NARRATIVE: CASE EVENT DATE: 20180226
